FAERS Safety Report 21669844 (Version 1)
Quarter: 2022Q4

REPORT INFORMATION
  Report Type: Spontaneous
  Country: AU (occurrence: AU)
  Receive Date: 20221201
  Receipt Date: 20221201
  Transmission Date: 20230113
  Serious: Yes (Hospitalization)
  Sender: FDA-Public Use
  Company Number: AU-LANTHEUS-LMI-2022-01419

PATIENT
  Age: 76 Year
  Sex: Female
  Weight: 83 kg

DRUGS (1)
  1. DEFINITY [Suspect]
     Active Substance: PERFLUTREN
     Indication: Echocardiogram
     Dosage: 4 MILLILITRE (DILUTION DETAILS NOT REPORTED)
     Route: 042
     Dates: start: 20221117, end: 20221117

REACTIONS (10)
  - Pulmonary embolism [Recovering/Resolving]
  - Respiratory arrest [Recovering/Resolving]
  - Oxygen saturation decreased [Recovering/Resolving]
  - Pulseless electrical activity [Recovering/Resolving]
  - Atrial fibrillation [Recovering/Resolving]
  - Blood pressure increased [Recovering/Resolving]
  - Loss of consciousness [Recovering/Resolving]
  - Respiratory distress [Recovering/Resolving]
  - Dyspnoea [Recovering/Resolving]
  - Hyperhidrosis [Recovering/Resolving]

NARRATIVE: CASE EVENT DATE: 20221117
